FAERS Safety Report 15299413 (Version 1)
Quarter: 2018Q3

REPORT INFORMATION
  Report Type: Spontaneous
  Country: GB (occurrence: GB)
  Receive Date: 20180821
  Receipt Date: 20180821
  Transmission Date: 20181010
  Serious: Yes (Other)
  Sender: FDA-Public Use
  Company Number: GB-TEVA-2018-GB-944263

PATIENT
  Age: 63 Year
  Sex: Female
  Weight: 110 kg

DRUGS (18)
  1. PREGABALIN. [Concomitant]
     Active Substance: PREGABALIN
     Dosage: 2 DOSAGE FORMS DAILY;
     Route: 065
     Dates: start: 20180419
  2. PARACETAMOL [Concomitant]
     Active Substance: ACETAMINOPHEN
     Dosage: TAKE 1 OR 2 4 TIMES/DAY WHEN REQD
     Route: 065
     Dates: start: 20180419
  3. SPIRIVA [Concomitant]
     Active Substance: TIOTROPIUM BROMIDE MONOHYDRATE
     Dosage: 2 DOSAGE FORMS DAILY; PUFFS
     Route: 065
     Dates: start: 20180419
  4. LACTULOSE. [Concomitant]
     Active Substance: LACTULOSE
     Dosage: 30 ML DAILY;
     Route: 065
     Dates: start: 20180419
  5. VITAMIN B [Concomitant]
     Active Substance: VITAMIN B
     Dosage: 2 DOSAGE FORMS DAILY;
     Route: 065
     Dates: start: 20180419
  6. LANSOPRAZOLE. [Concomitant]
     Active Substance: LANSOPRAZOLE
     Dosage: 1 DOSAGE FORMS DAILY;
     Route: 065
     Dates: start: 20180419
  7. DOXYCYCLINE. [Concomitant]
     Active Substance: DOXYCYCLINE
     Dosage: TWO NOW THEN ONE DAILY
     Route: 065
     Dates: start: 20180610, end: 20180617
  8. THIAMINE [Concomitant]
     Active Substance: THIAMINE
     Dosage: 3 DOSAGE FORMS DAILY;
     Route: 065
     Dates: start: 20180419
  9. FERROUS FUMARATE [Concomitant]
     Active Substance: FERROUS FUMARATE
     Dosage: 3 DOSAGE FORMS DAILY;
     Route: 065
     Dates: start: 20180419
  10. COCODAMOL [Suspect]
     Active Substance: ACETAMINOPHEN\CODEINE PHOSPHATE
     Route: 065
     Dates: start: 20180418
  11. FOSTAIR [Concomitant]
     Active Substance: BECLOMETHASONE\FORMOTEROL
     Dosage: 4 DOSAGE FORMS DAILY; PUFFS
     Route: 065
     Dates: start: 20180419
  12. OXYBUTYNIN. [Concomitant]
     Active Substance: OXYBUTYNIN CHLORIDE
     Dosage: 2 DOSAGE FORMS DAILY;
     Route: 065
     Dates: start: 20180419
  13. AMOXICILLIN. [Concomitant]
     Active Substance: AMOXICILLIN
     Dosage: 3 DOSAGE FORMS DAILY; RESCUE MEDICATION
     Route: 065
     Dates: start: 20180515, end: 20180522
  14. HYOSCINE BUTYLBROMIDE [Concomitant]
     Active Substance: BUTYLSCOPOLAMINE
     Dosage: 4 DOSAGE FORMS DAILY;
     Route: 065
     Dates: start: 20180419
  15. PREDNISOLONE. [Concomitant]
     Active Substance: PREDNISOLONE
     Dosage: 40 MILLIGRAM DAILY; FOR 5 DAYS
     Route: 065
     Dates: start: 20180610
  16. MIRTAZAPINE. [Concomitant]
     Active Substance: MIRTAZAPINE
     Dosage: 1 DOSAGE FORMS DAILY;
     Route: 065
     Dates: start: 20180419
  17. SALICYLIC ACID. [Concomitant]
     Active Substance: SALICYLIC ACID
     Dosage: 1 DOSAGE FORMS DAILY; APPLY DAILY
     Route: 065
     Dates: start: 20180503, end: 20180504
  18. SALBUTAMOL [Concomitant]
     Active Substance: ALBUTEROL
     Dosage: 2 PUFFS 4 HOURLY
     Route: 065
     Dates: start: 20180419

REACTIONS (2)
  - Headache [Recovered/Resolved]
  - Malaise [Recovered/Resolved]

NARRATIVE: CASE EVENT DATE: 20180723
